FAERS Safety Report 25327848 (Version 1)
Quarter: 2025Q2

REPORT INFORMATION
  Report Type: Spontaneous
  Country: GB (occurrence: GB)
  Receive Date: 20250518
  Receipt Date: 20250518
  Transmission Date: 20250716
  Serious: Yes (Hospitalization, Other)
  Sender: ABBVIE
  Company Number: None

PATIENT
  Age: 34 Year

DRUGS (7)
  1. ESCITALOPRAM [Suspect]
     Active Substance: ESCITALOPRAM OXALATE
     Indication: Product used for unknown indication
     Dosage: HELD LOW SODIUM
     Route: 048
  2. ENOXAPARIN [Concomitant]
     Active Substance: ENOXAPARIN
     Indication: Product used for unknown indication
  3. FERROUS SULFATE [Concomitant]
     Active Substance: FERROUS SULFATE
     Indication: Product used for unknown indication
     Dosage: AT LUNCHTIME, PATIENT STATES DOESN^T TAKE AS IT MAKES HER FEEL DIZZY. HAS BEEN TAKING AS IP
  4. QUETIAPINE [Concomitant]
     Active Substance: QUETIAPINE
     Indication: Product used for unknown indication
     Dosage: AT NIGHT
  5. QUETIAPINE [Concomitant]
     Active Substance: QUETIAPINE
     Indication: Product used for unknown indication
     Dosage: PATIENT STATES HAS ONLY BEEN TAKING 25MG MANE AS DIDN^T REALISE IT WAS PRESCRIBED TWICE A DAY
  6. FOLIC ACID [Concomitant]
     Active Substance: FOLIC ACID
     Indication: Product used for unknown indication
     Dosage: ...FOR 4 MONTHS
  7. CEPHALEXIN [Concomitant]
     Active Substance: CEPHALEXIN
     Indication: Product used for unknown indication
     Dosage: ADDITIONAL MEDICATION PRESCRIBED ON AUH 22/01/25 FOR 8 MORE DOSES, PATIENT STATES COMPLETED COURSE

REACTIONS (1)
  - Hyponatraemia [Recovered/Resolved]
